FAERS Safety Report 4809498-8 (Version None)
Quarter: 2005Q4

REPORT INFORMATION
  Report Type: 
  Country: None (occurrence: None)
  Receive Date: 20051021
  Receipt Date: 20040426
  Transmission Date: 20060501
  Serious: Yes (Hospitalization)
  Sender: FDA-Public Use
  Company Number: US_0404102575

PATIENT
  Age: 17 Year
  Sex: Female

DRUGS (2)
  1. OLANZAPINE [Suspect]
     Indication: PSYCHOTIC DISORDER
     Dosage: 25 MG DAY
  2. VALPROATE SODIUM [Concomitant]

REACTIONS (3)
  - NEUTROPENIA [None]
  - SOMNOLENCE [None]
  - WHITE BLOOD CELL COUNT DECREASED [None]
